FAERS Safety Report 18340798 (Version 2)
Quarter: 2020Q4

REPORT INFORMATION
  Report Type: Spontaneous
  Country: DE (occurrence: DE)
  Receive Date: 20201003
  Receipt Date: 20201016
  Transmission Date: 20210113
  Serious: Yes (Other)
  Sender: FDA-Public Use
  Company Number: DE-SUN PHARMACEUTICAL INDUSTRIES LTD-2020RR-263169

PATIENT

DRUGS (1)
  1. LEVETIRACETAM BASICS 100 MG/ML LOSUNG ZUM EINNEHMEN [Suspect]
     Active Substance: LEVETIRACETAM
     Indication: GENERALISED TONIC-CLONIC SEIZURE
     Dosage: 2.4 MILLILITER, BID
     Route: 048
     Dates: start: 20200805, end: 20200921

REACTIONS (3)
  - Product counterfeit [Unknown]
  - Drug ineffective [Unknown]
  - Drug level decreased [Unknown]
